FAERS Safety Report 25106791 (Version 1)
Quarter: 2025Q1

REPORT INFORMATION
  Report Type: Spontaneous
  Country: GB (occurrence: GB)
  Receive Date: 20250321
  Receipt Date: 20250321
  Transmission Date: 20250409
  Serious: Yes (Disabling)
  Sender: SANOFI AVENTIS
  Company Number: GB-SA-2025SA080145

PATIENT
  Age: 44 Year
  Sex: Female

DRUGS (1)
  1. DUPILUMAB [Suspect]
     Active Substance: DUPILUMAB
     Indication: Dermatitis atopic
     Dosage: 300 MG, QOW
     Route: 058
     Dates: start: 20241115, end: 20250313

REACTIONS (2)
  - Intervertebral disc compression [Unknown]
  - Neurological symptom [Not Recovered/Not Resolved]

NARRATIVE: CASE EVENT DATE: 20241215
